FAERS Safety Report 22623906 (Version 1)
Quarter: 2023Q2

REPORT INFORMATION
  Report Type: Spontaneous
  Country: US (occurrence: US)
  Receive Date: 20230621
  Receipt Date: 20230621
  Transmission Date: 20230722
  Serious: No
  Sender: FDA-Public Use
  Company Number: US-PROVENTION BIO, INC.-US-PRAG-23-00038

PATIENT
  Age: 25 Year
  Sex: Male

DRUGS (2)
  1. TZIELD [Suspect]
     Active Substance: TEPLIZUMAB-MZWV
     Indication: Diabetes prophylaxis
     Dosage: UNK
     Route: 042
     Dates: start: 20230508, end: 20230508
  2. TZIELD [Suspect]
     Active Substance: TEPLIZUMAB-MZWV
     Dosage: 238 MICROGRAM
     Route: 042
     Dates: start: 20230509, end: 20230509

REACTIONS (2)
  - Headache [Unknown]
  - Off label use [Unknown]

NARRATIVE: CASE EVENT DATE: 20230509
